FAERS Safety Report 21579278 (Version 1)
Quarter: 2022Q4

REPORT INFORMATION
  Report Type: Report from Study
  Country: DE (occurrence: DE)
  Receive Date: 20221110
  Receipt Date: 20221110
  Transmission Date: 20230113
  Serious: Yes (Hospitalization, Other)
  Sender: FDA-Public Use
  Company Number: DE-BRISTOL-MYERS SQUIBB COMPANY-2022-133386

PATIENT
  Age: 21 Year
  Sex: Female
  Weight: 49 kg

DRUGS (1)
  1. OZANIMOD [Suspect]
     Active Substance: OZANIMOD
     Indication: Colitis ulcerative
     Dosage: DAILY (1 TIME A DAY)
     Route: 048
     Dates: start: 20221011

REACTIONS (2)
  - Abdominal pain [Unknown]
  - Nephrolithiasis [Unknown]

NARRATIVE: CASE EVENT DATE: 20221101
